FAERS Safety Report 7674254-2 (Version None)
Quarter: 2011Q3

REPORT INFORMATION
  Report Type: 
  Country: None (occurrence: None)
  Receive Date: 20110810
  Receipt Date: 20110808
  Transmission Date: 20111222
  Serious: Yes (Other)
  Sender: FDA-Public Use
  Company Number: PH-PFIZER INC-2011180498

PATIENT
  Age: 67 Year
  Sex: Female

DRUGS (6)
  1. NORVASC [Concomitant]
     Indication: BLOOD PRESSURE MANAGEMENT
     Dosage: 5 MG, 1X/DAY
  2. AROMASIN [Suspect]
     Indication: NEOPLASM MALIGNANT
     Dosage: 25 MG, 1X/DAY
     Dates: start: 20110201
  3. CALCIUM CARBONATE [Concomitant]
     Dosage: UNK
  4. CRESTOR [Concomitant]
     Indication: BLOOD CHOLESTEROL INCREASED
     Dosage: 20 MG, 1X/DAY
  5. FISH OIL [Concomitant]
  6. FLAXSEED OIL [Concomitant]

REACTIONS (1)
  - SKIN PAPILLOMA [None]
